FAERS Safety Report 6157417-7 (Version None)
Quarter: 2009Q2

REPORT INFORMATION
  Report Type: 
  Country: None (occurrence: None)
  Receive Date: 20090416
  Receipt Date: 20090406
  Transmission Date: 20091009
  Serious: Yes (Death)
  Sender: FDA-Public Use
  Company Number: DE-PFIZER INC-2009196415

PATIENT

DRUGS (5)
  1. ARGATROBAN [Suspect]
     Indication: HEPARIN-INDUCED THROMBOCYTOPENIA
     Dosage: UNK
     Route: 042
     Dates: start: 20090306, end: 20090307
  2. PRIMAXIN [Concomitant]
     Dosage: 0.5 GM, UNK, 2X/DAY
     Dates: start: 20090301, end: 20090306
  3. ATENOLOL [Concomitant]
     Dosage: 4 NANGM, UNK, UNK
     Dates: start: 20090301, end: 20090306
  4. DOBUTREX [Concomitant]
     Dosage: 25 MG, UNK
     Dates: start: 20090301, end: 20090306
  5. CORDAREX [Concomitant]
     Dosage: 40 MG, UNK
     Dates: start: 20090301, end: 20090306

REACTIONS (1)
  - CARDIAC FAILURE [None]
